FAERS Safety Report 8343992-0 (Version None)
Quarter: 2012Q2

REPORT INFORMATION
  Report Type: 
  Country: None (occurrence: None)
  Receive Date: 20120508
  Receipt Date: 20120503
  Transmission Date: 20120825
  Serious: Yes (Other)
  Sender: FDA-Public Use
  Company Number: AU-PFIZER INC-2012099700

PATIENT
  Age: 16 Year
  Sex: Female
  Weight: 50 kg

DRUGS (11)
  1. LEVETIRACETAM [Suspect]
     Indication: MYOCLONIC EPILEPSY
  2. MIDAZOLAM HCL [Suspect]
     Indication: STATUS EPILEPTICUS
     Dosage: UNK
     Route: 042
  3. VALPROATE SODIUM [Suspect]
     Indication: STATUS EPILEPTICUS
     Dosage: UNK
  4. LEVETIRACETAM [Suspect]
     Indication: STATUS EPILEPTICUS
     Route: 042
  5. CLOBAZAM [Suspect]
     Indication: TONIC CONVULSION
  6. VALPROATE SODIUM [Suspect]
     Indication: CONVULSION
     Dosage: UNK
     Route: 042
  7. TOPIRAMATE [Suspect]
     Indication: STATUS EPILEPTICUS
     Dosage: UNK
     Route: 048
  8. METHYLPREDNISOLONE [Suspect]
     Dosage: UNK
     Route: 042
  9. LEVETIRACETAM [Suspect]
     Indication: TONIC CONVULSION
     Dosage: UNK
  10. CLOBAZAM [Suspect]
     Indication: MYOCLONIC EPILEPSY
  11. CLONAZEPAM [Suspect]
     Indication: STATUS EPILEPTICUS
     Dosage: UNK
     Route: 042

REACTIONS (2)
  - DRUG INEFFECTIVE [None]
  - STATUS EPILEPTICUS [None]
